FAERS Safety Report 5587268-3 (Version None)
Quarter: 2008Q1

REPORT INFORMATION
  Report Type: 
  Country: None (occurrence: None)
  Receive Date: 20080110
  Receipt Date: 20080102
  Transmission Date: 20080703
  Serious: Yes (Other)
  Sender: FDA-Public Use
  Company Number: US-PFIZER INC-2008001162

PATIENT
  Sex: Female
  Weight: 51.363 kg

DRUGS (5)
  1. CHANTIX [Suspect]
     Indication: SMOKING CESSATION THERAPY
     Route: 048
  2. LEVOXYL [Concomitant]
     Indication: THYROID DISORDER
  3. IBUPROFEN [Concomitant]
  4. FISH OIL [Concomitant]
     Indication: BLOOD CHOLESTEROL
  5. ALL OTHER THERAPEUTIC PRODUCTS [Concomitant]
     Indication: MENOPAUSE

REACTIONS (6)
  - ANXIETY [None]
  - DEPRESSION [None]
  - FEAR [None]
  - INSOMNIA [None]
  - PANIC ATTACK [None]
  - THERAPY REGIMEN CHANGED [None]
